FAERS Safety Report 10222953 (Version 2)
Quarter: 2014Q2

REPORT INFORMATION
  Report Type: Spontaneous
  Country: US (occurrence: US)
  Receive Date: 20140607
  Receipt Date: 20140620
  Transmission Date: 20141212
  Serious: No
  Sender: FDA-Public Use
  Company Number: US-LUNDBECK-DKLU1099860

PATIENT
  Age: 19 Year
  Sex: Male

DRUGS (4)
  1. ONFI [Suspect]
     Indication: CONVULSION
     Route: 048
     Dates: start: 201402
  2. LAMICTAL [Concomitant]
     Indication: PRODUCT USED FOR UNKNOWN INDICATION
  3. TRILEPTAL [Concomitant]
     Indication: PRODUCT USED FOR UNKNOWN INDICATION
  4. VIMPAT [Concomitant]
     Indication: PRODUCT USED FOR UNKNOWN INDICATION

REACTIONS (3)
  - Sleep disorder [Not Recovered/Not Resolved]
  - Anger [Not Recovered/Not Resolved]
  - Aggression [Unknown]
